FAERS Safety Report 24193135 (Version 1)
Quarter: 2024Q3

REPORT INFORMATION
  Report Type: Spontaneous
  Country: IT (occurrence: IT)
  Receive Date: 20240809
  Receipt Date: 20240809
  Transmission Date: 20241016
  Serious: No
  Sender: ALKEM
  Company Number: IT-ALKEM LABORATORIES LIMITED-IT-ALKEM-2024-13374

PATIENT
  Sex: Male

DRUGS (1)
  1. FOSFOMYCIN [Suspect]
     Active Substance: FOSFOMYCIN
     Indication: Product used for unknown indication
     Dosage: UNK
     Route: 042

REACTIONS (1)
  - Hypernatraemia [Unknown]
